FAERS Safety Report 14941217 (Version 2)
Quarter: 2018Q2

REPORT INFORMATION
  Report Type: Spontaneous
  Country: JP (occurrence: JP)
  Receive Date: 20180525
  Receipt Date: 20180601
  Transmission Date: 20180711
  Serious: No
  Sender: FDA-Public Use
  Company Number: JP-009507513-1805JPN012469

PATIENT
  Age: 46 Year
  Sex: Female

DRUGS (4)
  1. RHEUMATREX [Concomitant]
     Active Substance: METHOTREXATE SODIUM
     Indication: RHEUMATIC DISORDER
     Dosage: 6 MG, QD
     Route: 048
  2. ALENDRONATE SODIUM. [Suspect]
     Active Substance: ALENDRONATE SODIUM
     Indication: OSTEOPOROSIS
     Dosage: 35 MG, PER WEEK
     Route: 048
     Dates: start: 20180309
  3. SULFAPYRIDINE. [Concomitant]
     Active Substance: SULFAPYRIDINE
     Indication: RHEUMATIC DISORDER
     Dosage: 1000 MG/DAY
     Route: 048
  4. EDIROL [Concomitant]
     Active Substance: ELDECALCITOL
     Indication: OSTEOPOROSIS
     Dosage: 0.75 MG, DAY
     Route: 048

REACTIONS (2)
  - Epistaxis [Recovered/Resolved]
  - Dyspepsia [Recovered/Resolved]
